FAERS Safety Report 15399456 (Version 1)
Quarter: 2018Q3

REPORT INFORMATION
  Report Type: Spontaneous
  Country: US (occurrence: US)
  Receive Date: 20180918
  Receipt Date: 20180918
  Transmission Date: 20181010
  Serious: No
  Sender: FDA-Public Use
  Company Number: US-AMGEN-USASP2018092792

PATIENT
  Age: 15 Year
  Sex: Female

DRUGS (5)
  1. NEUPOGEN [Suspect]
     Active Substance: FILGRASTIM
     Dosage: 600 MUG, QD, FOR FIVE WEEKS
     Route: 058
  2. NEUPOGEN [Suspect]
     Active Substance: FILGRASTIM
     Dosage: 300 MUG, QD, FOR FOUR WEEKS
     Route: 058
  3. NEUPOGEN [Suspect]
     Active Substance: FILGRASTIM
     Dosage: 1440 MUG, QD, FOR THREE WEEKS
     Route: 058
     Dates: start: 2018
  4. NEUPOGEN [Suspect]
     Active Substance: FILGRASTIM
     Indication: NEUTROPENIA
     Dosage: 160 MUG, QD, FOR TWO WEEKS
     Route: 058
  5. NEUPOGEN [Suspect]
     Active Substance: FILGRASTIM
     Dosage: 200 MUG, QD, FOR TWO WEEKS
     Route: 058

REACTIONS (1)
  - Therapy non-responder [Unknown]
